FAERS Safety Report 7587616-9 (Version None)
Quarter: 2011Q3

REPORT INFORMATION
  Report Type: 
  Country: None (occurrence: None)
  Receive Date: 20110704
  Receipt Date: 20110622
  Transmission Date: 20111222
  Serious: Yes (Hospitalization)
  Sender: FDA-Public Use
  Company Number: PHHY2011US45068

PATIENT
  Sex: Male

DRUGS (10)
  1. VIGAMOX [Concomitant]
     Dates: start: 20110506
  2. SILODOSIN [Concomitant]
  3. GLEEVEC [Suspect]
     Indication: CHRONIC MYELOID LEUKAEMIA
     Dosage: 400 MG, QD
     Route: 048
     Dates: start: 20080516, end: 20100701
  4. TASIGNA [Suspect]
     Indication: CHRONIC MYELOID LEUKAEMIA
     Dosage: 300 MG, Q12H
     Dates: start: 20110524
  5. AVODART [Concomitant]
     Dates: start: 20110501
  6. METOPROLOL TARTRATE [Concomitant]
     Dates: start: 20101214
  7. FLUTICASONE PROPIONATE [Concomitant]
     Dosage: 50 UG, DAILY
  8. ZYRTEC [Concomitant]
     Dosage: PRN
  9. CETIRIZINE HCL [Concomitant]
     Dosage: UNK
     Dates: start: 20110222
  10. SILODOSIN [Concomitant]
     Dosage: DAILY
     Dates: start: 20101116

REACTIONS (3)
  - DYSPNOEA EXERTIONAL [None]
  - BLOOD BILIRUBIN INCREASED [None]
  - PERICARDIAL EFFUSION [None]
